FAERS Safety Report 7397266-5 (Version None)
Quarter: 2011Q2

REPORT INFORMATION
  Report Type: 
  Country: None (occurrence: None)
  Receive Date: 20110406
  Receipt Date: 20110323
  Transmission Date: 20111010
  Serious: Yes (Hospitalization)
  Sender: FDA-Public Use
  Company Number: US-EISAI INC-E7272-00088-CLI-US

PATIENT
  Sex: Male

DRUGS (23)
  1. COMPAZINE [Concomitant]
  2. AMBIEN [Concomitant]
     Indication: INSOMNIA
     Route: 048
     Dates: start: 20110215, end: 20110301
  3. PRILOSEC [Concomitant]
     Indication: GASTROINTESTINAL PAIN
     Route: 048
     Dates: start: 20110218
  4. SUCRALFATE [Concomitant]
     Indication: DYSPHAGIA
     Route: 048
     Dates: start: 20101230
  5. VIOCODIN [Concomitant]
     Indication: GASTROINTESTINAL PAIN
     Route: 048
     Dates: start: 20110218, end: 20110220
  6. SUCRALFATE [Concomitant]
  7. ONTAK [Suspect]
     Dosage: UNKNOWN
     Route: 041
     Dates: start: 20110214
  8. BENICAR [Concomitant]
     Indication: HYPERTENSION
     Route: 048
     Dates: start: 20100207
  9. MAALOX [Concomitant]
     Route: 048
     Dates: start: 20110214, end: 20110214
  10. SODIUM CHLORIDE [Concomitant]
     Indication: GASTROINTESTINAL PAIN
     Route: 041
     Dates: start: 20110218
  11. HYDROCODONE [Concomitant]
     Indication: PAIN
     Route: 048
     Dates: start: 20101206
  12. ACETAMINOPHEN [Concomitant]
     Indication: INSOMNIA
     Route: 048
     Dates: start: 20110214, end: 20110214
  13. ZOFRAN [Concomitant]
     Indication: VOMITING
  14. CARTIA XT [Concomitant]
     Indication: HYPERTENSION
     Route: 048
     Dates: start: 20100207
  15. ZOLOFT [Concomitant]
     Indication: DEPRESSION
     Route: 048
     Dates: start: 20101206
  16. COMPAZINE [Concomitant]
     Route: 048
     Dates: start: 20110207
  17. HYDROCODONE [Concomitant]
     Indication: RHEUMATOID ARTHRITIS
  18. ACETAMINOPHEN [Concomitant]
     Indication: PREMEDICATION
     Route: 048
     Dates: start: 20110214, end: 20110214
  19. BENADRYL [Concomitant]
     Indication: PREMEDICATION
     Route: 041
     Dates: start: 20110214, end: 20110214
  20. ZOFRAN [Concomitant]
     Indication: NAUSEA
     Dates: start: 20110222
  21. ZANTAC [Concomitant]
     Indication: PREMEDICATION
     Route: 041
     Dates: start: 20110218, end: 20110220
  22. KYTRIL [Concomitant]
     Indication: NAUSEA
     Dates: start: 20110215
  23. PREVACID [Concomitant]
     Route: 048
     Dates: start: 20101129

REACTIONS (1)
  - ATRIAL TACHYCARDIA [None]
